FAERS Safety Report 14756490 (Version 2)
Quarter: 2018Q2

REPORT INFORMATION
  Report Type: Other
  Country: DE (occurrence: DE)
  Receive Date: 20180413
  Receipt Date: 20180626
  Transmission Date: 20180711
  Serious: Yes (Death, Hospitalization, Other)
  Sender: FDA-Public Use
  Company Number: DE-MACLEODS PHARMACEUTICALS US LTD-MAC2018012567

PATIENT

DRUGS (8)
  1. BLEOMYCIN [Suspect]
     Active Substance: BLEOMYCIN SULFATE
     Indication: SEMINOMA
     Dosage: UNK,PEB
     Route: 065
  2. BLEOMYCIN [Suspect]
     Active Substance: BLEOMYCIN SULFATE
     Indication: TESTICULAR GERM CELL CANCER METASTATIC
  3. ETOPOSIDE. [Suspect]
     Active Substance: ETOPOSIDE
     Indication: TESTICULAR GERM CELL CANCER METASTATIC
     Dosage: UNK,2 DOSES WITH 100 MG/M2, 1 DOSE WITH 50 MG/M2
     Route: 042
     Dates: start: 20120416, end: 20120416
  4. CISPLATIN. [Suspect]
     Active Substance: CISPLATIN
     Indication: TESTICULAR GERM CELL CANCER METASTATIC
     Dosage: UNK,2 DOSES WITH 20 MG/M2, 1 DOSE WITH 10 MG/M2
     Route: 065
     Dates: start: 20120416, end: 20120428
  5. CISPLATIN. [Suspect]
     Active Substance: CISPLATIN
     Indication: SEMINOMA
  6. CLOPIDOGREL [Suspect]
     Active Substance: CLOPIDOGREL BISULFATE
     Indication: ANTIPLATELET THERAPY
     Dosage: UNK
     Route: 065
  7. ASPIRIN. [Suspect]
     Active Substance: ASPIRIN
     Indication: ANTIPLATELET THERAPY
     Route: 065
  8. ETOPOSIDE. [Suspect]
     Active Substance: ETOPOSIDE
     Indication: SEMINOMA
     Dosage: UNK,CYCLIC
     Route: 065

REACTIONS (14)
  - Thrombocytopenia [Fatal]
  - Cerebral artery stenosis [Fatal]
  - Cerebral infarction [Fatal]
  - Hemiparesis [Fatal]
  - Arterial occlusive disease [Fatal]
  - Cerebral infarction [Fatal]
  - Facial paralysis [Fatal]
  - Cerebral artery occlusion [Fatal]
  - Dysarthria [Fatal]
  - Brain oedema [Fatal]
  - Hemiplegia [Fatal]
  - Cerebral microhaemorrhage [Fatal]
  - Ischaemic cerebral infarction [Fatal]
  - Subdural haemorrhage [Fatal]

NARRATIVE: CASE EVENT DATE: 20120414
